FAERS Safety Report 7347763-3 (Version None)
Quarter: 2011Q1

REPORT INFORMATION
  Report Type: 
  Country: None (occurrence: None)
  Receive Date: 20110222
  Receipt Date: 20100914
  Transmission Date: 20110831
  Serious: Yes (Other)
  Sender: FDA-Public Use
  Company Number: 2010026438

PATIENT
  Sex: Female
  Weight: 91.173 kg

DRUGS (2)
  1. VIVAGLOBIN [Suspect]
     Indication: HYPOGAMMAGLOBULINAEMIA
     Dosage: 6.4 G SUBCUTANEOUS, 7.6 G SUBCUTANEOUS
     Route: 058
     Dates: start: 20100828, end: 20100828
  2. VIVAGLOBIN [Suspect]
     Indication: HYPOGAMMAGLOBULINAEMIA
     Dosage: 6.4 G SUBCUTANEOUS, 7.6 G SUBCUTANEOUS
     Route: 058
     Dates: start: 20100901, end: 20100901

REACTIONS (6)
  - ANGIOEDEMA [None]
  - BURNING SENSATION [None]
  - CHEST PAIN [None]
  - RASH [None]
  - HEADACHE [None]
  - THROAT TIGHTNESS [None]
